FAERS Safety Report 4668566-4 (Version None)
Quarter: 2005Q2

REPORT INFORMATION
  Report Type: 
  Country: None (occurrence: None)
  Receive Date: 20050518
  Receipt Date: 20050427
  Transmission Date: 20051028
  Serious: Yes (Death, Life-Threatening)
  Sender: FDA-Public Use
  Company Number: B0347245A

PATIENT
  Age: 26 Year
  Sex: Male
  Weight: 69.8539 kg

DRUGS (2)
  1. LAMICTAL [Suspect]
  2. VALPROATE SODIUM [Suspect]

REACTIONS (7)
  - ANTICONVULSANT DRUG LEVEL INCREASED [None]
  - CARDIAC DISORDER [None]
  - CONDITION AGGRAVATED [None]
  - GRAND MAL CONVULSION [None]
  - PETIT MAL EPILEPSY [None]
  - SUDDEN DEATH [None]
  - THROMBOCYTOPENIA [None]
